FAERS Safety Report 8772338 (Version 2)
Quarter: 2012Q4

REPORT INFORMATION
  Report Type: 
  Country: NL (occurrence: NL)
  Receive Date: 20120905
  Receipt Date: 20120914
  Transmission Date: 20130627
  Serious: Yes (Death, Hospitalization)
  Sender: FDA-Public Use
  Company Number: PHHY2012NL076617

PATIENT
  Sex: Male
  Weight: 70 kg

DRUGS (5)
  1. ZOMETA [Suspect]
     Indication: MULTIPLE MYELOMA
     Dosage: 4mg/100ml, once per 28 days
     Dates: start: 20120816
  2. MELPHALAN [Concomitant]
  3. PREDNISONE [Concomitant]
  4. THALIDOMIDE [Concomitant]
  5. ASCAL [Concomitant]

REACTIONS (2)
  - Septic shock [Fatal]
  - Multi-organ failure [Fatal]
